FAERS Safety Report 8834398 (Version 2)
Quarter: 2019Q1

REPORT INFORMATION
  Report Type: Spontaneous
  Country: US (occurrence: US)
  Receive Date: 20121010
  Receipt Date: 20190210
  Transmission Date: 20190418
  Serious: No
  Sender: FDA-Public Use
  Company Number: US-ASTRAZENECA-2012SE75090

PATIENT
  Age: 63 Year
  Sex: Female

DRUGS (9)
  1. CLARITIN [Concomitant]
     Active Substance: LORATADINE
  2. ASPIRIN. [Concomitant]
     Active Substance: ASPIRIN
  3. HYDROCODONE [Concomitant]
     Active Substance: HYDROCODONE
  4. ACETAMINOPHIN [Concomitant]
  5. LOMOTIL [Concomitant]
     Active Substance: ATROPINE SULFATE\DIPHENOXYLATE HYDROCHLORIDE
  6. VIMOVO [Suspect]
     Active Substance: ESOMEPRAZOLE MAGNESIUM\NAPROXEN
     Route: 048
  7. CHLORTHALIDONE. [Concomitant]
     Active Substance: CHLORTHALIDONE
  8. TRAMADOL. [Concomitant]
     Active Substance: TRAMADOL
  9. TAGRISSO [Suspect]
     Active Substance: OSIMERTINIB
     Dosage: 40 MG PRN
     Route: 048
     Dates: start: 20180109

REACTIONS (6)
  - Ulcer [Unknown]
  - Onychalgia [Recovering/Resolving]
  - Osteoarthritis [Unknown]
  - Onychoclasis [Recovering/Resolving]
  - Nail disorder [Recovering/Resolving]
  - Haemorrhage [Recovering/Resolving]
